FAERS Safety Report 4491252-0 (Version None)
Quarter: 2004Q4

REPORT INFORMATION
  Report Type: 
  Country: None (occurrence: None)
  Receive Date: 20041101
  Receipt Date: 20041022
  Transmission Date: 20050328
  Serious: Yes (Hospitalization)
  Sender: FDA-Public Use
  Company Number: CHPA2003US00533

PATIENT
  Sex: Male

DRUGS (3)
  1. GAS-X EXTRA STRENGTH (NCH) (SIMETHICONE) SOFT GELATIN CAPSULE [Suspect]
     Indication: FLATULENCE
     Dosage: 2 SOFT GELS, ORAL
     Route: 048
     Dates: start: 20030207, end: 20030208
  2. DRUG USED IN DIABETES [Concomitant]
  3. MYOCARDIAL THERAPY [Concomitant]

REACTIONS (5)
  - CHILLS [None]
  - CORONARY ARTERY OCCLUSION [None]
  - MYOCARDIAL INFARCTION [None]
  - PYREXIA [None]
  - TREMOR [None]
